FAERS Safety Report 9031102 (Version 1)
Quarter: 2013Q1

REPORT INFORMATION
  Report Type: Spontaneous
  Country: IT (occurrence: IT)
  Receive Date: 20130123
  Receipt Date: 20130123
  Transmission Date: 20140127
  Serious: Yes (Other)
  Sender: FDA-Public Use
  Company Number: IT-PFIZER INC-2013019036

PATIENT
  Age: 80 Year
  Sex: Female

DRUGS (4)
  1. TORVAST [Suspect]
     Indication: HYPERCHOLESTEROLAEMIA
     Dosage: 40 MG, DAILY
     Route: 048
     Dates: start: 20121101, end: 20121210
  2. TICLOPIDINE [Concomitant]
     Dosage: UNK
  3. ZARELIS [Concomitant]
     Dosage: UNK
  4. FOLINA [Concomitant]
     Dosage: UNK

REACTIONS (4)
  - Hepatotoxicity [Recovering/Resolving]
  - Gamma-glutamyltransferase increased [Recovering/Resolving]
  - Transaminases increased [Recovering/Resolving]
  - Blood alkaline phosphatase increased [Recovering/Resolving]
